FAERS Safety Report 11021184 (Version 1)
Quarter: 2015Q2

REPORT INFORMATION
  Report Type: Report from Study
  Country: JP (occurrence: JP)
  Receive Date: 20150413
  Receipt Date: 20150413
  Transmission Date: 20150821
  Serious: Yes (Other)
  Sender: FDA-Public Use
  Company Number: JP-ASTRAZENECA-2015SE34383

PATIENT
  Age: 78 Year
  Sex: Male

DRUGS (27)
  1. CRESTOR [Suspect]
     Active Substance: ROSUVASTATIN CALCIUM
     Indication: HYPERCHOLESTEROLAEMIA
     Dosage: SUSPENDED FROM 01-JAN-2013 TO 10-JAN-2013
     Route: 048
     Dates: start: 20120831, end: 20130205
  2. VOGLIBOSE OD [Suspect]
     Active Substance: VOGLIBOSE
     Indication: DIABETES MELLITUS
     Route: 048
     Dates: start: 20120210, end: 20130205
  3. LAXOBERON [Concomitant]
     Active Substance: SODIUM PICOSULFATE
     Route: 065
     Dates: start: 20130430, end: 20141016
  4. ALLEGRA [Concomitant]
     Active Substance: FEXOFENADINE HYDROCHLORIDE
     Route: 048
     Dates: start: 20130205, end: 20130215
  5. ALLELOCK [Concomitant]
     Active Substance: OLOPATADINE HYDROCHLORIDE
     Route: 048
     Dates: start: 20130215
  6. LAXOBERON [Concomitant]
     Active Substance: SODIUM PICOSULFATE
     Route: 065
     Dates: start: 20120713, end: 20130205
  7. CRESTOR [Suspect]
     Active Substance: ROSUVASTATIN CALCIUM
     Indication: HYPERCHOLESTEROLAEMIA
     Route: 048
     Dates: start: 20130726
  8. CORINAEL CR [Suspect]
     Active Substance: NIFEDIPINE
     Indication: HYPERTENSION
     Route: 048
     Dates: start: 20130511, end: 20130514
  9. DIOVAN [Suspect]
     Active Substance: VALSARTAN
     Indication: HYPERTENSION
     Route: 048
     Dates: start: 20120427, end: 20130205
  10. MYSER [Concomitant]
     Active Substance: DIFLUPREDNATE
     Route: 062
     Dates: start: 20130215, end: 20140213
  11. HIRUDOID [Concomitant]
     Active Substance: GLYCOSAMINOGLYCANS
     Dosage: OPTIMAL DOSE
     Route: 065
     Dates: start: 20130308
  12. UNISIA [Concomitant]
     Active Substance: AMLODIPINE BESYLATE\CANDESARTAN CILEXETIL
     Indication: HYPERTENSION
     Route: 048
     Dates: start: 20130603
  13. RINDERON V [Concomitant]
     Active Substance: BETAMETHASONE VALERATE
     Dosage: OPTIMAL DOSE
     Route: 062
     Dates: start: 20140214
  14. JANUVIA [Suspect]
     Active Substance: SITAGLIPTIN PHOSPHATE
     Indication: DIABETES MELLITUS
     Route: 048
     Dates: start: 20120323, end: 20130205
  15. JANUVIA [Suspect]
     Active Substance: SITAGLIPTIN PHOSPHATE
     Indication: DIABETES MELLITUS
     Route: 048
     Dates: start: 20130628
  16. RESTAMIN [Concomitant]
     Active Substance: DIPHENHYDRAMINE
     Route: 062
     Dates: start: 20130205, end: 20130501
  17. OLOPATADINE HYDROCHLORIDE. [Concomitant]
     Active Substance: OLOPATADINE HYDROCHLORIDE
     Route: 048
     Dates: start: 20130215
  18. ZESULAN [Concomitant]
     Active Substance: MEQUITAZINE
     Route: 048
     Dates: start: 20130215, end: 20130321
  19. AROMATIC CASTOR OIL [Concomitant]
     Route: 065
     Dates: start: 20141017
  20. CORINAEL CR [Suspect]
     Active Substance: NIFEDIPINE
     Indication: HYPERTENSION
     Route: 048
     Dates: start: 20120104, end: 20130205
  21. ARGAMATE [Concomitant]
     Active Substance: POLYSTYRENE
     Route: 065
     Dates: start: 20121116, end: 20130111
  22. FORSENID [Concomitant]
     Route: 048
     Dates: start: 20141017
  23. VOGLIBOSE OD [Suspect]
     Active Substance: VOGLIBOSE
     Indication: DIABETES MELLITUS
     Route: 048
     Dates: start: 20130816
  24. INFLUENZA HA VACCINE [Concomitant]
     Active Substance: INFLUENZA VIRUS VACCINE
     Dosage: DAILY
     Route: 065
     Dates: start: 20121026, end: 20121026
  25. WHITE PETROLATUM [Concomitant]
     Active Substance: PETROLATUM
     Dosage: OPTIMAL DOSE
     Route: 065
     Dates: start: 20130215
  26. CEFZON [Concomitant]
     Active Substance: CEFDINIR
     Route: 048
     Dates: start: 20130409, end: 20130412
  27. MAGMITT [Concomitant]
     Active Substance: MAGNESIUM OXIDE
     Route: 048
     Dates: start: 20130430

REACTIONS (4)
  - Rash pruritic [None]
  - Hypertension [None]
  - Coronary artery stenosis [Recovering/Resolving]
  - Drug eruption [None]

NARRATIVE: CASE EVENT DATE: 20150306
